FAERS Safety Report 16669499 (Version 1)
Quarter: 2019Q3

REPORT INFORMATION
  Report Type: Spontaneous
  Country: CA (occurrence: CA)
  Receive Date: 20190805
  Receipt Date: 20190805
  Transmission Date: 20191004
  Serious: Yes (Disabling)
  Sender: FDA-Public Use
  Company Number: None

PATIENT
  Age: 33 Year
  Sex: Female
  Weight: 81 kg

DRUGS (1)
  1. LUPRON [Suspect]
     Active Substance: LEUPROLIDE ACETATE
     Indication: ENDOMETRIOSIS
     Dates: start: 20190321, end: 20190622

REACTIONS (16)
  - Nausea [None]
  - Muscle spasms [None]
  - Peripheral swelling [None]
  - Self-injurious ideation [None]
  - Night sweats [None]
  - Gastrointestinal pain [None]
  - Decreased appetite [None]
  - Insomnia [None]
  - Hypophagia [None]
  - Pain in extremity [None]
  - Injection site pain [None]
  - Rash [None]
  - Monoplegia [None]
  - Weight increased [None]
  - Memory impairment [None]
  - Abdominal pain upper [None]

NARRATIVE: CASE EVENT DATE: 20190321
